FAERS Safety Report 6223552-8 (Version None)
Quarter: 2009Q2

REPORT INFORMATION
  Report Type: 
  Country: None (occurrence: None)
  Receive Date: 20090610
  Receipt Date: 20090528
  Transmission Date: 20091009
  Serious: Yes (Other)
  Sender: FDA-Public Use
  Company Number: 235961K09USA

PATIENT
  Age: 62 Year
  Sex: Male
  Weight: 134 kg

DRUGS (7)
  1. REBIF [Suspect]
     Indication: MULTIPLE SCLEROSIS
     Dosage: 44 MCG, 3 IN 1 WEEKS, SUBCUTANEOUS
     Route: 058
     Dates: start: 20080507
  2. INSULIN (INSULIN /0030501/) [Concomitant]
  3. METFORMIN HCL [Concomitant]
  4. VERAPAMIL [Concomitant]
  5. ENALAPRIL (ENALAPRIL /00574901/) [Concomitant]
  6. FLEXERIL (CYCLOBENAZAPRINE HYDROCHLORIDE) [Concomitant]
  7. UNSPECIFIED ANTIBIOTIC (ALL OTHER THERAPEUTIC PRODUCTS) [Concomitant]

REACTIONS (3)
  - BLOOD GLUCOSE FLUCTUATION [None]
  - GALLBLADDER DISORDER [None]
  - GALLBLADDER POLYP [None]
